FAERS Safety Report 4676608-5 (Version None)
Quarter: 2005Q2

REPORT INFORMATION
  Report Type: 
  Country: None (occurrence: None)
  Receive Date: 20050526
  Receipt Date: 20050510
  Transmission Date: 20051028
  Serious: Yes (Death, Hospitalization)
  Sender: FDA-Public Use
  Company Number: 11148

PATIENT
  Age: 68 Year
  Sex: Female
  Weight: 73 kg

DRUGS (3)
  1. CYTARABINE [Suspect]
     Indication: ACUTE MYELOID LEUKAEMIA
     Dosage: 100 MG/M2 OTH IV
     Route: 042
     Dates: start: 20050303, end: 20050325
  2. DAUNORUBICIN HCL [Suspect]
     Indication: ACUTE MYELOID LEUKAEMIA
     Dosage: 45 MG/M2 OTH IV
     Route: 042
     Dates: start: 20050303, end: 20050319
  3. MDR-INTRAVENOUS FORMULATION [Suspect]
     Indication: ACUTE MYELOID LEUKAEMIA
     Dosage: 550 MG OTH IV
     Route: 042
     Dates: start: 20050303, end: 20050319

REACTIONS (6)
  - CONFUSIONAL STATE [None]
  - HAEMORRHAGE [None]
  - HYPOXIA [None]
  - INFECTION [None]
  - STOMATITIS [None]
  - WEIGHT INCREASED [None]
